FAERS Safety Report 21332221 (Version 1)
Quarter: 2022Q3

REPORT INFORMATION
  Report Type: Spontaneous
  Country: RO (occurrence: RO)
  Receive Date: 20220914
  Receipt Date: 20220914
  Transmission Date: 20221027
  Serious: Yes (Other)
  Sender: FDA-Public Use
  Company Number: RO-SUN PHARMACEUTICAL INDUSTRIES LTD-2022RR-354232

PATIENT
  Age: 26 Year
  Sex: Female
  Weight: 74 kg

DRUGS (9)
  1. ANASTROZOLE [Suspect]
     Active Substance: ANASTROZOLE
     Indication: Hormone therapy
     Dosage: 1 MILLIGRAM, DAILY
     Route: 065
  2. DOCETAXEL [Suspect]
     Active Substance: DOCETAXEL
     Indication: Breast cancer
     Dosage: 75 MILLIGRAM/SQ. METER, EVERY 3 WEEKS
     Route: 065
     Dates: start: 201904
  3. PACLITAXEL [Suspect]
     Active Substance: PACLITAXEL
     Indication: Breast cancer
     Dosage: 60 MILLIGRAM/SQ. METER
     Route: 065
  4. PACLITAXEL [Suspect]
     Active Substance: PACLITAXEL
     Dosage: 175 MILLIGRAM/SQ. METER
     Route: 065
  5. PERTUZUMAB [Suspect]
     Active Substance: PERTUZUMAB
     Indication: Breast cancer
     Dosage: 840 MILLIGRAM, LOADING DOSE ON CYCLE 1
     Route: 065
  6. PERTUZUMAB [Suspect]
     Active Substance: PERTUZUMAB
     Dosage: 420 MILLIGRAM. EVERY 3 WEEKS
     Route: 065
  7. TRASTUZUMAB [Suspect]
     Active Substance: TRASTUZUMAB
     Indication: Breast cancer
     Dosage: 600 MILLIGRAM, EVERY THREE WEEKS
     Route: 058
  8. TRASTUZUMAB [Suspect]
     Active Substance: TRASTUZUMAB
     Dosage: UNK
     Route: 058
  9. GOSERELIN [Concomitant]
     Active Substance: GOSERELIN
     Indication: Breast cancer
     Dosage: 3.6 MG
     Route: 065

REACTIONS (9)
  - Alopecia [Unknown]
  - Disease progression [Unknown]
  - Metastases to liver [Unknown]
  - Therapeutic product effect incomplete [Unknown]
  - Dermatitis acneiform [Unknown]
  - Nail dystrophy [Unknown]
  - Neutropenia [Unknown]
  - Thrombocytopenia [Unknown]
  - Metastases to central nervous system [Unknown]
